FAERS Safety Report 7487280-3 (Version None)
Quarter: 2011Q2

REPORT INFORMATION
  Report Type: 
  Country: None (occurrence: None)
  Receive Date: 20110518
  Receipt Date: 20110404
  Transmission Date: 20111010
  Serious: Yes (Other)
  Sender: FDA-Public Use
  Company Number: US-BAYER-200943905NA

PATIENT
  Age: 26 Year
  Sex: Female
  Weight: 98 kg

DRUGS (34)
  1. CYCLOBENZAPRINE [Concomitant]
     Dosage: 10 MG, QD
     Route: 048
  2. TOPIRAMATE [Concomitant]
     Dosage: 100 MG, BID
     Route: 048
  3. AZITHROMYCIN [Concomitant]
     Dosage: 250 MG, QD
     Route: 048
  4. METRONIDAZOLE [Concomitant]
     Dosage: 500 MG, QD
     Route: 048
  5. IMITREX [Concomitant]
     Dosage: 100 MG, QD
     Route: 048
  6. HYDROCODONE BITARTRATE AND ACETAMINOPHEN [Concomitant]
     Dosage: UNK UNK, PRN
     Route: 048
  7. NURIGIL [Concomitant]
     Dosage: 150 MG, QD
     Route: 048
  8. ROTIN-A MICRO [Concomitant]
     Dosage: 50 G, HS
     Route: 048
  9. METHOTREXATE [Concomitant]
     Dosage: 2.5 MG, Q6WK
     Route: 048
  10. H-C TUSSIVE [Concomitant]
     Dosage: UNK UNK, PRN
     Route: 048
  11. SUMATRIPTAN SUCCINATE [Concomitant]
     Dosage: 10 MG, QD
  12. CIPROFLOXACIN [Concomitant]
     Dosage: 500 MG, QD
     Route: 048
  13. FOLIC ACID [Concomitant]
     Dosage: 1 MG, QD
     Route: 048
  14. R-TANNATE [Concomitant]
     Dosage: 1 U, BID
     Route: 048
  15. ANUCORT-HC [Concomitant]
     Dosage: 25 MG, UNK
     Route: 054
  16. WELLBUTRIN [Concomitant]
     Dosage: 150 MG, QD
     Route: 048
  17. FLUVIRIN [Concomitant]
     Dosage: 5 ML, QD
  18. CYMBALTA [Concomitant]
     Dosage: 40 MG, QD
     Route: 048
  19. PSEUDOVENT [Concomitant]
     Dosage: 400 MG, QD
     Route: 048
  20. BUDEPRION [Concomitant]
     Dosage: 300 MG, QD
     Route: 048
  21. YASMIN [Suspect]
     Indication: CONTRACEPTION
     Dosage: UNK
     Dates: start: 20010101, end: 20071001
  22. YASMIN [Suspect]
     Indication: AMENORRHOEA
     Dosage: UNK
     Dates: start: 20050101, end: 20091201
  23. ABILIFY [Concomitant]
     Dosage: 2 MG, QD
     Route: 048
  24. TRAMADOL HCL [Concomitant]
     Dosage: 50 MG, BID
     Route: 048
  25. TREXIMET [Concomitant]
     Dosage: 85 MG, QD
     Route: 048
  26. ETODOLAC [Concomitant]
     Dosage: 300 MG, BID
     Route: 048
  27. YAZ [Suspect]
     Indication: CONTRACEPTION
     Dates: start: 20090201, end: 20090901
  28. ALPRAZOLAM [Concomitant]
     Dosage: 1 MG, QD
     Route: 048
  29. EFFEXOR XR [Concomitant]
     Dosage: UNK UNK, QD
     Route: 048
  30. FLUCONAZOLE [Concomitant]
     Dosage: 150 MG, QD
     Route: 048
  31. NEXIUM [Concomitant]
     Dosage: 40 MG, QD
     Route: 048
  32. YAZ [Suspect]
     Indication: AMENORRHOEA
     Dosage: UNK
     Dates: start: 20050101, end: 20091201
  33. PREDNISONE [Concomitant]
     Dosage: 20 MG, QD
     Route: 048
  34. AMITRIPTYLINE HCL [Concomitant]
     Dosage: 10 MG, QD
     Route: 048

REACTIONS (6)
  - ORGAN FAILURE [None]
  - GALLBLADDER DISORDER [None]
  - INJURY [None]
  - PAIN [None]
  - BILIARY DYSKINESIA [None]
  - CHOLECYSTECTOMY [None]
